FAERS Safety Report 9247270 (Version 1)
Quarter: 2013Q2

REPORT INFORMATION
  Report Type: Spontaneous
  Country: BR (occurrence: BR)
  Receive Date: 20130423
  Receipt Date: 20130423
  Transmission Date: 20140414
  Serious: Yes (Other)
  Sender: FDA-Public Use
  Company Number: BR-AMGEN-BRASP2013027739

PATIENT
  Age: 55 Year
  Sex: Female
  Weight: 63 kg

DRUGS (4)
  1. ENBREL [Suspect]
     Indication: RHEUMATOID ARTHRITIS
     Dosage: 50 MG, ONCE WEEKLY
     Route: 058
     Dates: start: 20130328
  2. ARAVA [Concomitant]
     Dosage: UNK UNK, UNK
  3. CODEINE [Concomitant]
     Dosage: UNK UNK, UNK
  4. PARACETAMOL [Concomitant]
     Dosage: UNK UNK, UNK

REACTIONS (7)
  - Blood pressure decreased [Unknown]
  - Decreased appetite [Not Recovered/Not Resolved]
  - Headache [Unknown]
  - Feeling abnormal [Not Recovered/Not Resolved]
  - Sluggishness [Not Recovered/Not Resolved]
  - Vomiting [Unknown]
  - Nausea [Unknown]
